FAERS Safety Report 6738941-2 (Version None)
Quarter: 2010Q2

REPORT INFORMATION
  Report Type: 
  Country: None (occurrence: None)
  Receive Date: 20100521
  Receipt Date: 20100506
  Transmission Date: 20101027
  Serious: Yes (Other)
  Sender: FDA-Public Use
  Company Number: AUR-APL-2010-01318

PATIENT
  Age: 44 Year
  Sex: Female
  Weight: 68.03 kg

DRUGS (3)
  1. AMOXICILLIN [Suspect]
     Dates: start: 20100101, end: 20100101
  2. CHANTIX [Suspect]
     Indication: SMOKING CESSATION THERAPY
     Dosage: 1MG, BID, ORAL
     Route: 048
     Dates: start: 20100301, end: 20100101
  3. STEROID INHALER [Suspect]
     Dates: start: 20100101, end: 20100101

REACTIONS (6)
  - ANXIETY [None]
  - FEELING ABNORMAL [None]
  - FEELING JITTERY [None]
  - INSOMNIA [None]
  - MALAISE [None]
  - PARANOIA [None]
